FAERS Safety Report 8451219-4 (Version None)
Quarter: 2012Q2

REPORT INFORMATION
  Report Type: 
  Country: None (occurrence: None)
  Receive Date: 20120620
  Receipt Date: 20120301
  Transmission Date: 20120825
  Serious: No
  Sender: FDA-Public Use
  Company Number: US-VERTEX PHARMACEUTICALS INC.-AE-2012-000355

PATIENT
  Sex: Male
  Weight: 102.15 kg

DRUGS (7)
  1. LISINOPRIL [Concomitant]
     Indication: HYPERTENSION
     Route: 048
  2. MELOXICAM [Concomitant]
     Indication: PAIN
     Route: 048
  3. NORCO [Concomitant]
     Indication: PAIN
     Route: 048
  4. PEGASYS [Concomitant]
     Indication: HEPATITIS C
     Route: 058
     Dates: start: 20111220
  5. COPEGUS [Concomitant]
     Indication: HEPATITIS C
     Route: 048
     Dates: start: 20111220
  6. INCIVEK [Suspect]
     Indication: HEPATITIS C
     Route: 048
     Dates: start: 20111220
  7. FLEXERIL [Concomitant]
     Route: 048

REACTIONS (10)
  - DYSGEUSIA [None]
  - FEELING ABNORMAL [None]
  - EMOTIONAL DISORDER [None]
  - HYPERHIDROSIS [None]
  - FATIGUE [None]
  - ASTHENIA [None]
  - ANORECTAL DISCOMFORT [None]
  - DEPRESSED MOOD [None]
  - RASH ERYTHEMATOUS [None]
  - ANAL PRURITUS [None]
